FAERS Safety Report 7682475-8 (Version None)
Quarter: 2011Q3

REPORT INFORMATION
  Report Type: 
  Country: None (occurrence: None)
  Receive Date: 20110815
  Receipt Date: 20110808
  Transmission Date: 20111222
  Serious: Yes (Other)
  Sender: FDA-Public Use
  Company Number: GB-CEPHALON-US016948

PATIENT
  Sex: Male

DRUGS (4)
  1. SINEMET [Concomitant]
     Indication: PARKINSON'S DISEASE
     Route: 065
  2. SILDENAFIL CITRATE [Concomitant]
     Indication: ERECTILE DYSFUNCTION
     Route: 065
  3. PROVIGIL [Suspect]
     Indication: SOMNOLENCE
     Route: 048
     Dates: start: 20051125, end: 20051125
  4. OMEPRAZOLE [Concomitant]
     Route: 065

REACTIONS (4)
  - DISSOCIATION [None]
  - PARANOIA [None]
  - AGITATION [None]
  - CONFUSIONAL STATE [None]
